FAERS Safety Report 6205288-2 (Version None)
Quarter: 2009Q2

REPORT INFORMATION
  Report Type: 
  Country: None (occurrence: None)
  Receive Date: 20090527
  Receipt Date: 20090309
  Transmission Date: 20091009
  Serious: No
  Sender: FDA-Public Use
  Company Number: US-ABBOTT-09P-163-0561300-00

PATIENT
  Sex: Female

DRUGS (4)
  1. SIMCOR [Suspect]
     Indication: HYPERCHOLESTEROLAEMIA
     Dosage: 500MG/20MG AT BEDTIME
     Route: 048
     Dates: start: 20090302
  2. ASPIRIN [Concomitant]
     Indication: DRUG USE FOR UNKNOWN INDICATION
  3. IMITREX [Concomitant]
     Indication: MIGRAINE
  4. ESTRADIOL [Concomitant]
     Indication: DRUG USE FOR UNKNOWN INDICATION
     Route: 048

REACTIONS (2)
  - FLUSHING [None]
  - HEADACHE [None]
